FAERS Safety Report 23743547 (Version 1)
Quarter: 2024Q2

REPORT INFORMATION
  Report Type: Report from Study
  Country: US (occurrence: US)
  Receive Date: 20240415
  Receipt Date: 20240415
  Transmission Date: 20240716
  Serious: Yes (Other)
  Sender: FDA-Public Use
  Company Number: US-ABBVIE-5717231

PATIENT
  Age: 47 Year
  Sex: Female

DRUGS (13)
  1. HUMIRA [Suspect]
     Active Substance: ADALIMUMAB
     Indication: Ankylosing spondylitis
     Route: 058
     Dates: start: 202003, end: 202403
  2. HUMIRA [Suspect]
     Active Substance: ADALIMUMAB
     Dosage: FIRST ADMIN DATE- 2024
     Route: 058
  3. ROPINIROLE [Concomitant]
     Active Substance: ROPINIROLE
     Indication: Product used for unknown indication
     Dosage: ROPINIROLE 2MG HS
  4. THERACRAN [Concomitant]
     Indication: Product used for unknown indication
     Dosage: CRANBERRY SUPPLEMENT (THERACRAN 1)
  5. ZOFRAN [Suspect]
     Active Substance: ONDANSETRON HYDROCHLORIDE
     Indication: Product used for unknown indication
     Dosage: ZOFRAN PRN
     Route: 065
  6. DULOXETINE [Concomitant]
     Active Substance: DULOXETINE
     Indication: Product used for unknown indication
     Dosage: DULOXETINE 60MG
  7. KLONOPIN [Concomitant]
     Active Substance: CLONAZEPAM
     Indication: Product used for unknown indication
     Dosage: KLONOPIN 1MG PRN
  8. VUITY [Concomitant]
     Active Substance: PILOCARPINE HYDROCHLORIDE
     Indication: Product used for unknown indication
     Dosage: VUITY EYE DROPS
  9. EXCEDRIN MIGRAINE [Concomitant]
     Active Substance: ACETAMINOPHEN\ASPIRIN\CAFFEINE
     Indication: Product used for unknown indication
  10. PROMETHAZINE [Concomitant]
     Active Substance: PROMETHAZINE HYDROCHLORIDE
     Indication: Product used for unknown indication
     Dosage: PROMETHAZINE PRN
  11. BUPROPION [Concomitant]
     Active Substance: BUPROPION
     Indication: Product used for unknown indication
     Dosage: BUPROPION XL 300MG
  12. DOMPERIDONE [Concomitant]
     Active Substance: DOMPERIDONE
     Indication: Impaired gastric emptying
     Dosage: DOMPERIDONE 10MG 2 DAILY
  13. LINZESS [Concomitant]
     Active Substance: LINACLOTIDE
     Indication: Product used for unknown indication
     Dosage: LINZESS 72MG QOD

REACTIONS (8)
  - Ovarian cyst [Recovered/Resolved]
  - Pharyngitis streptococcal [Recovered/Resolved]
  - Migraine [Unknown]
  - Urinary tract infection [Recovering/Resolving]
  - Nausea [Not Recovered/Not Resolved]
  - Kidney infection [Unknown]
  - Pyrexia [Not Recovered/Not Resolved]
  - Unevaluable event [Unknown]

NARRATIVE: CASE EVENT DATE: 20230301
